FAERS Safety Report 22278576 (Version 2)
Quarter: 2023Q2

REPORT INFORMATION
  Report Type: Spontaneous
  Country: PR (occurrence: PR)
  Receive Date: 20230503
  Receipt Date: 20230524
  Transmission Date: 20230722
  Serious: No
  Sender: FDA-Public Use
  Company Number: PR-PFIZER INC-202300172364

PATIENT
  Age: 12 Year
  Sex: Male

DRUGS (1)
  1. GENOTROPIN [Suspect]
     Active Substance: SOMATROPIN
     Indication: Growth disorder
     Dosage: 1.4 MG, DAILY

REACTIONS (3)
  - Poor quality device used [Not Recovered/Not Resolved]
  - Needle issue [Not Recovered/Not Resolved]
  - Device breakage [Unknown]
